FAERS Safety Report 4848046-3 (Version None)
Quarter: 2005Q4

REPORT INFORMATION
  Report Type: 
  Country: None (occurrence: None)
  Receive Date: 20051206
  Receipt Date: 20051123
  Transmission Date: 20060501
  Serious: Yes (Death)
  Sender: FDA-Public Use
  Company Number: 219458

PATIENT
  Age: 70 Year
  Sex: Male
  Weight: 85 kg

DRUGS (9)
  1. MABTHERA (RITUXIMAB)                 CONC FOR SOLUTION FOR INFUSION [Suspect]
     Indication: NON-HODGKIN'S LYMPHOMA
     Dosage: INTRAVENOUS
     Route: 042
     Dates: start: 20050421, end: 20050702
  2. MABTHERA (RITUXIMAB) CONC FOR SOLUTION FOR INFUSION [Suspect]
  3. CYCLOPHOSPHAMIDE [Concomitant]
  4. VINCRISTINE [Concomitant]
  5. DOXORUBICIN HYDROCHLORIDE [Concomitant]
  6. PREDNISONE [Concomitant]
  7. FLUDARABINE (FLUARAABINE PHOSPHATE) [Concomitant]
  8. NOVANTRONE [Concomitant]
  9. DECADRON [Concomitant]

REACTIONS (2)
  - HYPOTENSION [None]
  - SEPSIS [None]
